FAERS Safety Report 25205493 (Version 2)
Quarter: 2025Q2

REPORT INFORMATION
  Report Type: Spontaneous
  Country: CN (occurrence: CN)
  Receive Date: 20250417
  Receipt Date: 20250506
  Transmission Date: 20250716
  Serious: Yes (Death, Hospitalization, Other)
  Sender: MSN LABORATORIES PRIVATE LIMITED
  Company Number: CN-MSNLABS-2025MSNLIT00943

PATIENT

DRUGS (11)
  1. SIROLIMUS [Suspect]
     Active Substance: SIROLIMUS
     Indication: Immunosuppressant drug therapy
     Dosage: 1MG ONCE DAILY,PO
     Route: 048
     Dates: start: 20230313, end: 20230327
  2. SIROLIMUS [Suspect]
     Active Substance: SIROLIMUS
     Indication: Lung transplant rejection
  3. PREDNISONE ACETATE [Suspect]
     Active Substance: PREDNISONE ACETATE
     Indication: Immunosuppressant drug therapy
     Dosage: 10MG ONCE DAILY
     Route: 065
  4. PREDNISONE ACETATE [Suspect]
     Active Substance: PREDNISONE ACETATE
     Indication: Prophylaxis against transplant rejection
     Dosage: 12.5MG ONCE PER DAY (DURING SURGERY) PO
     Route: 048
  5. PREDNISONE ACETATE [Suspect]
     Active Substance: PREDNISONE ACETATE
     Indication: Lung transplant rejection
  6. MYCOPHENOLATE MOFETIL [Suspect]
     Active Substance: MYCOPHENOLATE MOFETIL
     Indication: Immunosuppressant drug therapy
     Route: 065
  7. MYCOPHENOLATE MOFETIL [Suspect]
     Active Substance: MYCOPHENOLATE MOFETIL
     Indication: Prophylaxis against transplant rejection
  8. TACROLIMUS [Suspect]
     Active Substance: TACROLIMUS
     Indication: Immunosuppressant drug therapy
     Route: 065
  9. TACROLIMUS [Suspect]
     Active Substance: TACROLIMUS
     Indication: Prophylaxis against transplant rejection
  10. CEFMETAZOLE [Concomitant]
     Active Substance: CEFMETAZOLE
     Dosage: 2G Q12H IV DRIP
     Route: 041
  11. GANCICLOVIR [Concomitant]
     Active Substance: GANCICLOVIR
     Dosage: 0.25G Q12H IVDRIP
     Route: 041

REACTIONS (1)
  - Acinetobacter sepsis [Fatal]
